FAERS Safety Report 24590913 (Version 1)
Quarter: 2024Q4

REPORT INFORMATION
  Report Type: Report from Study
  Country: US (occurrence: US)
  Receive Date: 20241107
  Receipt Date: 20241107
  Transmission Date: 20250115
  Serious: No
  Sender: SUNOVION
  Company Number: US-SUMITOMO PHARMA SWITZERLAND GMBH-2024SPA000362

PATIENT

DRUGS (2)
  1. ORGOVYX [Suspect]
     Active Substance: RELUGOLIX
     Indication: Prostate cancer
     Dosage: 360 MG
     Route: 048
     Dates: start: 20240416, end: 20240416
  2. ORGOVYX [Suspect]
     Active Substance: RELUGOLIX
     Dosage: 120 MG, QD
     Route: 048
     Dates: start: 20240417

REACTIONS (8)
  - Chest discomfort [Unknown]
  - Paraesthesia [Unknown]
  - Cardiac disorder [Unknown]
  - Chills [Unknown]
  - Dizziness [Unknown]
  - Hyperhidrosis [Unknown]
  - Bone pain [Unknown]
  - Hot flush [Unknown]
